FAERS Safety Report 23823542 (Version 1)
Quarter: 2024Q2

REPORT INFORMATION
  Report Type: Spontaneous
  Country: US (occurrence: US)
  Receive Date: 20240507
  Receipt Date: 20240507
  Transmission Date: 20240716
  Serious: No
  Sender: FDA-Public Use
  Company Number: US-002147023-NVSC2024US093827

PATIENT

DRUGS (2)
  1. SANDIMMUNE [Suspect]
     Active Substance: CYCLOSPORINE
     Indication: Product used for unknown indication
     Dosage: UNK
     Route: 065
  2. SANDIMMUNE [Suspect]
     Active Substance: CYCLOSPORINE

REACTIONS (3)
  - Oral discomfort [Unknown]
  - Recalled product [Unknown]
  - Oral pain [Unknown]
